FAERS Safety Report 25769693 (Version 7)
Quarter: 2025Q4

REPORT INFORMATION
  Report Type: Spontaneous
  Country: IN (occurrence: IN)
  Receive Date: 20250906
  Receipt Date: 20251112
  Transmission Date: 20260117
  Serious: Yes (Hospitalization, Other)
  Sender: NOVARTIS
  Company Number: IN-002147023-NVSC2025IN138246

PATIENT
  Age: 70 Year
  Sex: Female
  Weight: 49 kg

DRUGS (23)
  1. LETROZOLE [Suspect]
     Active Substance: LETROZOLE
     Indication: Hormone receptor positive HER2 negative breast cancer
     Dosage: 2.5 MG, QD
     Route: 048
     Dates: start: 20250516, end: 20250818
  2. RIBOCICLIB [Suspect]
     Active Substance: RIBOCICLIB
     Indication: Hormone receptor positive HER2 negative breast cancer
     Dosage: 600 MG, QD (FOR 3 WEEKS FOLLOWED BY 1 WEEK OFF)
     Route: 048
     Dates: start: 20250516, end: 20250530
  3. RIBOCICLIB [Suspect]
     Active Substance: RIBOCICLIB
     Dosage: 600 MG, QD
     Route: 048
     Dates: start: 20250531, end: 20250605
  4. RIBOCICLIB [Suspect]
     Active Substance: RIBOCICLIB
     Dosage: 400 MG, QD (FOR 3 WEEKS FOLLOWED BY 1 WEEK OFF)
     Route: 048
     Dates: start: 20250614, end: 20250628
  5. RIBOCICLIB [Suspect]
     Active Substance: RIBOCICLIB
     Dosage: 400 MG, QD
     Route: 048
     Dates: start: 20250629, end: 20250704
  6. RIBOCICLIB [Suspect]
     Active Substance: RIBOCICLIB
     Dosage: 400 MG, QD (3 WEEKS FOLLOWED BY 1 WEEK OFF TREATMENT )
     Route: 048
     Dates: start: 20250712, end: 20250801
  7. RIBOCICLIB [Suspect]
     Active Substance: RIBOCICLIB
     Dosage: 400 MG, QD
     Route: 048
     Dates: start: 20250812, end: 20250812
  8. RIBOCICLIB [Suspect]
     Active Substance: RIBOCICLIB
     Dosage: 400 MG, QD
     Route: 048
     Dates: start: 20250813, end: 20250813
  9. ALBUTEROL [Concomitant]
     Active Substance: ALBUTEROL
     Indication: Product used for unknown indication
     Dosage: UNK
     Route: 065
  10. LEVOFLOXACIN [Concomitant]
     Active Substance: LEVOFLOXACIN
     Indication: Product used for unknown indication
     Dosage: 500 MG, QD
     Route: 065
  11. DEXAMETHASONE [Concomitant]
     Active Substance: DEXAMETHASONE
     Indication: Product used for unknown indication
     Dosage: 4 MG, BID
     Route: 065
  12. VITAMIN B6 [Concomitant]
     Active Substance: PYRIDOXINE HYDROCHLORIDE
     Indication: Vitamin supplementation
     Dosage: 40 MG, QD
     Route: 065
     Dates: start: 20250825
  13. AMIODARONE [Concomitant]
     Active Substance: AMIODARONE
     Indication: Arrhythmia
     Dosage: 150 MG (ONCE)
     Route: 042
     Dates: start: 20250823
  14. PANTOPRAZOLE [Concomitant]
     Active Substance: PANTOPRAZOLE
     Indication: Hyperchlorhydria
     Dosage: 40 MG, BID
     Route: 042
     Dates: start: 20250819
  15. NANDROLONE [Concomitant]
     Active Substance: NANDROLONE
     Indication: Pain
     Dosage: UNK
     Route: 042
     Dates: start: 20250821
  16. ONDANSETRON [Concomitant]
     Active Substance: ONDANSETRON
     Indication: Prophylaxis
     Dosage: 4 MG (SOS)
     Route: 042
     Dates: start: 20250819
  17. ONDANSETRON [Concomitant]
     Active Substance: ONDANSETRON
     Indication: Nausea
  18. TELMISARTAN [Concomitant]
     Active Substance: TELMISARTAN
     Indication: Hypertension
     Dosage: 40 MG (ONCE)
     Route: 065
     Dates: start: 20250821
  19. TELMISARTAN [Concomitant]
     Active Substance: TELMISARTAN
     Dosage: 40 MG, BID
     Route: 065
     Dates: start: 20250821, end: 20250822
  20. AMIKACIN [Concomitant]
     Active Substance: AMIKACIN
     Indication: Product used for unknown indication
     Dosage: 750 MG, QD
     Route: 065
  21. ETHAMBUTOL [Concomitant]
     Active Substance: ETHAMBUTOL HYDROCHLORIDE
     Indication: Product used for unknown indication
     Route: 065
  22. Dexona [Concomitant]
     Indication: Product used for unknown indication
     Dosage: UNK
     Route: 065
  23. FENTANYL [Concomitant]
     Active Substance: FENTANYL
     Indication: Pain
     Dosage: UNK (2 AMP)(ONCE)
     Route: 042
     Dates: start: 20250822

REACTIONS (45)
  - Urosepsis [Recovered/Resolved]
  - Dehydration [Unknown]
  - Hypoglycaemia [Recovered/Resolved]
  - Hypoalbuminaemia [Unknown]
  - Confusional state [Unknown]
  - Generalised oedema [Not Recovered/Not Resolved]
  - Hypokinesia [Unknown]
  - Somnolence [Unknown]
  - Pyrexia [Unknown]
  - Hypophagia [Unknown]
  - Unresponsive to stimuli [Unknown]
  - Asthenia [Unknown]
  - Hemiparesis [Unknown]
  - Hyponatraemia [Unknown]
  - Pleural effusion [Unknown]
  - Hypoxia [Unknown]
  - Dyspnoea [Unknown]
  - Tachypnoea [Unknown]
  - Constipation [Unknown]
  - Respiratory alkalosis [Unknown]
  - Escherichia urinary tract infection [Unknown]
  - Atrial fibrillation [Unknown]
  - Hypokalaemia [Unknown]
  - White blood cell count decreased [Unknown]
  - Neutropenia [Unknown]
  - Thrombocytopenia [Unknown]
  - Metastases to central nervous system [Unknown]
  - Metastases to spine [Unknown]
  - Hydrocephalus [Unknown]
  - Lymphangiosis carcinomatosa [Unknown]
  - Tuberculosis [Unknown]
  - Ascites [Unknown]
  - Pneumothorax [Unknown]
  - Monoplegia [Unknown]
  - Tricuspid valve incompetence [Unknown]
  - Hypotension [Unknown]
  - Left ventricular dysfunction [Unknown]
  - Anaemia [Unknown]
  - Sinusitis [Unknown]
  - Decubitus ulcer [Unknown]
  - Cough [Unknown]
  - Hepatomegaly [Unknown]
  - Oedema peripheral [Unknown]
  - Back pain [Unknown]
  - Muscular weakness [Unknown]

NARRATIVE: CASE EVENT DATE: 20250812
